FAERS Safety Report 9277418 (Version 2)
Quarter: 2013Q2

REPORT INFORMATION
  Report Type: Spontaneous
  Country: US (occurrence: US)
  Receive Date: 20130508
  Receipt Date: 20130520
  Transmission Date: 20140414
  Serious: Yes (Other)
  Sender: FDA-Public Use
  Company Number: US-VERTEX PHARMACEUTICALS INC-2013-005763

PATIENT
  Age: 58 Year
  Sex: Female

DRUGS (17)
  1. INCIVEK [Suspect]
     Indication: HEPATITIS C
     Dosage: UNK
  2. PEGYLATED INTERFERON ALFA-2A [Suspect]
     Indication: HEPATITIS C
  3. RIBAVIRIN [Suspect]
     Indication: HEPATITIS C
  4. COUMADIN [Concomitant]
  5. DUROGESIC [Concomitant]
  6. XANAX [Concomitant]
  7. FLONASE [Concomitant]
  8. CELEXA [Concomitant]
  9. TOFRANIL [Concomitant]
  10. SYMBICORT [Concomitant]
  11. HYDROCODONE W/ACETAMINOPHEN [Concomitant]
  12. B COMPLEX [Concomitant]
  13. CALCIUM [Concomitant]
  14. AMLODIPINE [Concomitant]
     Dosage: 5 MG, UNK
  15. ALBUTEROL [Concomitant]
  16. SINGULAIR [Concomitant]
  17. FUROSEMIDE [Concomitant]

REACTIONS (2)
  - Rash generalised [Recovered/Resolved]
  - Pruritus [Unknown]
